FAERS Safety Report 5055766-7 (Version None)
Quarter: 2006Q3

REPORT INFORMATION
  Report Type: 
  Country: None (occurrence: None)
  Receive Date: 20060714
  Receipt Date: 20060630
  Transmission Date: 20061208
  Serious: Yes (Hospitalization, Other)
  Sender: FDA-Public Use
  Company Number: 2006001328

PATIENT
  Age: 84 Year
  Sex: Female

DRUGS (5)
  1. TARCEVA [Suspect]
     Indication: NON-SMALL CELL LUNG CANCER
     Dosage: 150 MG (QD), ORAL
     Route: 048
     Dates: start: 20060501
  2. DEXAMETHASONE TAB [Concomitant]
  3. METOPROLOL TARTRATE [Concomitant]
  4. HYDROCHLOROTHIAZIDE [Concomitant]
  5. WELLBUTRIN [Concomitant]

REACTIONS (4)
  - DYSGRAPHIA [None]
  - FALL [None]
  - MOVEMENT DISORDER [None]
  - MUSCULAR WEAKNESS [None]
